FAERS Safety Report 25298238 (Version 1)
Quarter: 2025Q2

REPORT INFORMATION
  Report Type: Spontaneous
  Country: US (occurrence: US)
  Receive Date: 20250512
  Receipt Date: 20250512
  Transmission Date: 20250717
  Serious: No
  Sender: ABBVIE
  Company Number: US-ABBVIE-6263165

PATIENT
  Sex: Female

DRUGS (1)
  1. LEXAPRO [Suspect]
     Active Substance: ESCITALOPRAM OXALATE
     Indication: Antidepressant therapy
     Route: 048
     Dates: start: 20250428

REACTIONS (7)
  - Arthritis [Unknown]
  - Inflammation [Not Recovered/Not Resolved]
  - Joint noise [Unknown]
  - Dizziness [Unknown]
  - Pain [Recovering/Resolving]
  - Fatigue [Unknown]
  - Feeling abnormal [Unknown]

NARRATIVE: CASE EVENT DATE: 20250401
